FAERS Safety Report 9648326 (Version 1)
Quarter: 2013Q4

REPORT INFORMATION
  Report Type: Spontaneous
  Country: US (occurrence: None)
  Receive Date: 20131025
  Receipt Date: 20131025
  Transmission Date: 20140711
  Serious: Yes (Life-Threatening, Hospitalization)
  Sender: FDA-Public Use
  Company Number: None

PATIENT
  Age: 73 Year
  Sex: Female
  Weight: 100 kg

DRUGS (11)
  1. RIVAROXABAN [Suspect]
     Indication: ATRIAL FIBRILLATION
     Route: 048
     Dates: start: 20130331, end: 20131021
  2. ASPIRIN [Concomitant]
  3. DIGOXIN [Concomitant]
  4. CARDIZEM [Concomitant]
  5. HYDROCHLOROTHIAZIDE [Concomitant]
  6. POTASSIUM [Concomitant]
  7. LISINOPRIL [Concomitant]
  8. PROTONIX [Concomitant]
  9. PREDNISONE [Concomitant]
  10. XARELTO [Concomitant]
  11. DOLOBID [Concomitant]

REACTIONS (1)
  - Cerebral haemorrhage [None]
